FAERS Safety Report 9062341 (Version 5)
Quarter: 2014Q2

REPORT INFORMATION
  Report Type: Spontaneous
  Country: US (occurrence: US)
  Receive Date: 20130213
  Receipt Date: 20140401
  Transmission Date: 20141212
  Serious: Yes (Hospitalization)
  Sender: FDA-Public Use
  Company Number: US-GLAXOSMITHKLINE-A1007359A

PATIENT
  Age: 76 Year
  Sex: Female

DRUGS (2)
  1. FLOLAN [Suspect]
     Indication: PULMONARY ARTERIAL HYPERTENSION
     Dosage: 36NGKM CONTINUOUS
     Route: 065
     Dates: start: 20060203
  2. REVATIO [Concomitant]

REACTIONS (7)
  - Pneumonia [Recovered/Resolved]
  - Cardiac failure [Recovered/Resolved]
  - Upper respiratory tract infection [Recovered/Resolved]
  - Peripheral swelling [Recovered/Resolved]
  - Cardiac failure [Unknown]
  - Investigation [Unknown]
  - Treatment noncompliance [Unknown]
